FAERS Safety Report 5162347-3 (Version None)
Quarter: 2006Q4

REPORT INFORMATION
  Report Type: 
  Country: None (occurrence: None)
  Receive Date: 20061130
  Receipt Date: 20061127
  Transmission Date: 20070319
  Serious: Yes (Other)
  Sender: FDA-Public Use
  Company Number: NL-MERCK-0611NLD00032

PATIENT
  Age: 37 Year
  Sex: Female

DRUGS (5)
  1. NOROXIN [Suspect]
     Indication: CYSTITIS
     Route: 048
     Dates: start: 20061020, end: 20061027
  2. SIRDALUD [Concomitant]
     Indication: MULTIPLE SCLEROSIS
     Route: 048
  3. IBUPROFEN [Concomitant]
     Indication: PAIN
     Route: 048
  4. IBUPROFEN [Concomitant]
     Route: 048
  5. ACETAMINOPHEN [Concomitant]
     Indication: PAIN
     Route: 065

REACTIONS (1)
  - MONOPLEGIA [None]
